FAERS Safety Report 18915533 (Version 2)
Quarter: 2021Q1

REPORT INFORMATION
  Report Type: Report from Study
  Country: EG (occurrence: EG)
  Receive Date: 20210219
  Receipt Date: 20210302
  Transmission Date: 20210420
  Serious: Yes (Life-Threatening, Hospitalization, Other)
  Sender: FDA-Public Use
  Company Number: NVSC2021EG037163

PATIENT
  Age: 72 Year
  Sex: Female

DRUGS (2)
  1. AFINITOR [Suspect]
     Active Substance: EVEROLIMUS
     Indication: COLON CANCER
     Dosage: 1 DF, QD
     Route: 048
     Dates: start: 20201029
  2. AFINITOR [Suspect]
     Active Substance: EVEROLIMUS
     Dosage: UNK (2 TAB AFINITOR 5MG PER DAY THEN 1 TAB THE OTHER DAY)
     Route: 065
     Dates: start: 20210207

REACTIONS (13)
  - Blood calcium decreased [Recovering/Resolving]
  - Hypotension [Not Recovered/Not Resolved]
  - Blood albumin decreased [Recovering/Resolving]
  - Fatigue [Unknown]
  - Malaise [Not Recovered/Not Resolved]
  - Nausea [Not Recovered/Not Resolved]
  - Blood albumin increased [Not Recovered/Not Resolved]
  - Blood uric acid increased [Not Recovered/Not Resolved]
  - Blood potassium decreased [Recovering/Resolving]
  - Somnolence [Not Recovered/Not Resolved]
  - Headache [Not Recovered/Not Resolved]
  - Blood calcium increased [Not Recovered/Not Resolved]
  - Blood potassium increased [Not Recovered/Not Resolved]

NARRATIVE: CASE EVENT DATE: 20201105
